FAERS Safety Report 20725586 (Version 3)
Quarter: 2023Q1

REPORT INFORMATION
  Report Type: Spontaneous
  Country: US (occurrence: US)
  Receive Date: 20220419
  Receipt Date: 20230317
  Transmission Date: 20230417
  Serious: Yes (Other)
  Sender: FDA-Public Use
  Company Number: US-PFIZER INC-202101333844

PATIENT
  Age: 68 Year
  Sex: Female

DRUGS (1)
  1. IBRANCE [Suspect]
     Active Substance: PALBOCICLIB
     Indication: Metastases to bone
     Dosage: 125 MG, CYCLIC (125 MG 3X7 UD TAB 21)
     Dates: start: 20210928

REACTIONS (10)
  - Spinal compression fracture [Recovering/Resolving]
  - Hepatitis B [Unknown]
  - Off label use [Unknown]
  - Malaise [Unknown]
  - Insomnia [Recovered/Resolved]
  - Fatigue [Unknown]
  - Fluid retention [Unknown]
  - Constipation [Unknown]
  - Dry mouth [Unknown]
  - Flatulence [Unknown]

NARRATIVE: CASE EVENT DATE: 20210101
